FAERS Safety Report 10219395 (Version 1)
Quarter: 2014Q2

REPORT INFORMATION
  Report Type: Spontaneous
  Country: US (occurrence: US)
  Receive Date: 20140605
  Receipt Date: 20140605
  Transmission Date: 20141212
  Serious: Yes (Hospitalization)
  Sender: FDA-Public Use
  Company Number: 2014SP003014

PATIENT
  Sex: Female

DRUGS (2)
  1. METHOTREXATE [Suspect]
     Indication: RHEUMATOID ARTHRITIS
  2. FOLIC ACID [Suspect]
     Indication: RHEUMATOID ARTHRITIS

REACTIONS (3)
  - Decreased immune responsiveness [Unknown]
  - Pneumonia [Unknown]
  - Fatigue [Unknown]
